FAERS Safety Report 18634384 (Version 1)
Quarter: 2020Q4

REPORT INFORMATION
  Report Type: Spontaneous
  Country: US (occurrence: US)
  Receive Date: 20201218
  Receipt Date: 20201218
  Transmission Date: 20210114
  Serious: Yes (Hospitalization)
  Sender: FDA-Public Use
  Company Number: US-MYLANLABS-2020M1103679

PATIENT
  Age: 63 Year
  Sex: Male

DRUGS (2)
  1. BENZATROPINE [Suspect]
     Active Substance: BENZTROPINE
     Indication: DRUG THERAPY
     Dosage: UNK
     Route: 065
  2. CLOZAPINE. [Suspect]
     Active Substance: CLOZAPINE
     Indication: SCHIZOPHRENIA
     Dosage: UNK
     Route: 065

REACTIONS (2)
  - Hypophagia [Recovered/Resolved]
  - Ileus paralytic [Recovered/Resolved]
